FAERS Safety Report 4660884-9 (Version None)
Quarter: 2005Q2

REPORT INFORMATION
  Report Type: 
  Country: None (occurrence: None)
  Receive Date: 20050427
  Receipt Date: 20050216
  Transmission Date: 20051028
  Serious: Yes (Other)
  Sender: FDA-Public Use
  Company Number: US-JNJFOC-20050204826

PATIENT
  Age: 40 Year
  Sex: Male

DRUGS (2)
  1. ULTRAM [Suspect]
     Indication: BACK PAIN
     Dosage: SEE IMAGE
  2. NEURONTIN [Concomitant]

REACTIONS (3)
  - DRUG DEPENDENCE [None]
  - DRUG WITHDRAWAL SYNDROME [None]
  - MEDICATION ERROR [None]
